FAERS Safety Report 4836809-X (Version None)
Quarter: 2005Q4

REPORT INFORMATION
  Report Type: 
  Country: None (occurrence: None)
  Receive Date: 20051123
  Receipt Date: 20051024
  Transmission Date: 20060501
  Serious: Yes (Life-Threatening, Disabling, Other)
  Sender: FDA-Public Use
  Company Number: US-MERCK-0510USA08585

PATIENT
  Age: 51 Year
  Sex: Female
  Weight: 59 kg

DRUGS (2)
  1. FOSAMAX [Suspect]
     Indication: OSTEOPOROSIS
     Route: 048
     Dates: start: 20040101, end: 20040101
  2. NORMODYNE [Concomitant]
     Indication: HYPERTENSION
     Route: 065

REACTIONS (11)
  - BONE PAIN [None]
  - CALCIUM DEFICIENCY [None]
  - CONFUSIONAL STATE [None]
  - CONTUSION [None]
  - HIATUS HERNIA [None]
  - OESOPHAGEAL STENOSIS [None]
  - OSTEOPOROTIC FRACTURE [None]
  - SKIN EXFOLIATION [None]
  - VITAMIN D DEFICIENCY [None]
  - VOMITING [None]
  - WEIGHT DECREASED [None]
